FAERS Safety Report 10061227 (Version 2)
Quarter: 2014Q2

REPORT INFORMATION
  Report Type: Spontaneous
  Country: US (occurrence: US)
  Receive Date: 20140407
  Receipt Date: 20140509
  Transmission Date: 20141212
  Serious: Yes (Death)
  Sender: FDA-Public Use
  Company Number: US-AMGEN-USASP2014023473

PATIENT
  Age: 99 Year
  Sex: Female
  Weight: 53.06 kg

DRUGS (1)
  1. PROLIA [Suspect]
     Indication: OSTEOPOROSIS
     Route: 058

REACTIONS (2)
  - Acute respiratory failure [Fatal]
  - Pneumonia [Fatal]
